FAERS Safety Report 10078955 (Version 3)
Quarter: 2014Q4

REPORT INFORMATION
  Report Type: Spontaneous
  Country: US (occurrence: US)
  Receive Date: 20140415
  Receipt Date: 20141016
  Transmission Date: 20150528
  Serious: No
  Sender: FDA-Public Use
  Company Number: US-009507513-1404USA004036

PATIENT
  Sex: Male

DRUGS (1)
  1. PROSCAR [Suspect]
     Active Substance: FINASTERIDE
     Indication: ALOPECIA
     Dosage: 1.25 MG, UNK
     Route: 048
     Dates: start: 20110607, end: 20120505

REACTIONS (20)
  - Drug administration error [Unknown]
  - Meniscus injury [Unknown]
  - Semen analysis abnormal [Unknown]
  - Cognitive disorder [Not Recovered/Not Resolved]
  - Orgasmic sensation decreased [Unknown]
  - Erectile dysfunction [Not Recovered/Not Resolved]
  - Tonsillectomy [Unknown]
  - Nasal septal operation [Unknown]
  - Meniscus operation [Unknown]
  - Loss of libido [Unknown]
  - Wrong technique in drug usage process [Unknown]
  - Sexual dysfunction [Not Recovered/Not Resolved]
  - Ejaculation delayed [Unknown]
  - Hyperlipidaemia [Unknown]
  - Inguinal hernia [Unknown]
  - Semen volume decreased [Unknown]
  - Anxiety [Not Recovered/Not Resolved]
  - Depression [Not Recovered/Not Resolved]
  - Ejaculation disorder [Unknown]
  - Wrist surgery [Unknown]

NARRATIVE: CASE EVENT DATE: 20110607
